FAERS Safety Report 5562967-8 (Version None)
Quarter: 2007Q4

REPORT INFORMATION
  Report Type: 
  Country: None (occurrence: None)
  Receive Date: 20071212
  Receipt Date: 20071212
  Transmission Date: 20080405
  Serious: Yes (Other)
  Sender: FDA-Public Use
  Company Number: None

PATIENT
  Age: 19 Year
  Sex: Male
  Weight: 81.6475 kg

DRUGS (12)
  1. REMICADE [Suspect]
     Indication: CROHN'S DISEASE
     Dosage: 800MG -10MG/KG- Q8WEEKS IV DRIP
     Route: 041
     Dates: start: 20051031, end: 20071120
  2. PENTASA [Concomitant]
  3. PROTONIX [Concomitant]
  4. MULTI-VITAMIN [Concomitant]
  5. ZYRTEC [Concomitant]
  6. DOXYCYCLINE [Concomitant]
  7. DICYLOMINE [Concomitant]
  8. OMEGA III [Concomitant]
  9. ZOLOFT [Concomitant]
  10. TYLENOL [Concomitant]
  11. ENTEROCORT EC [Concomitant]
  12. PREDNISONE [Concomitant]

REACTIONS (9)
  - ABDOMINAL PAIN [None]
  - CYTOMEGALOVIRUS INFECTION [None]
  - DYSPNOEA [None]
  - EPSTEIN-BARR VIRUS INFECTION [None]
  - IMMUNOSUPPRESSION [None]
  - LEUKAEMIA [None]
  - LYMPHOMA [None]
  - MUSCULOSKELETAL PAIN [None]
  - RENAL FAILURE ACUTE [None]
